FAERS Safety Report 9154731 (Version 1)
Quarter: 2013Q1

REPORT INFORMATION
  Report Type: Spontaneous
  Country: US (occurrence: None)
  Receive Date: 20130212
  Receipt Date: 20130212
  Transmission Date: 20140127
  Serious: Yes (Hospitalization)
  Sender: FDA-Public Use
  Company Number: 2013P1001744

PATIENT
  Age: 64 Year
  Sex: Female
  Weight: 77.2 kg

DRUGS (6)
  1. HYDROCHLOROTHIAZIDE [Suspect]
     Dosage: 12.5 MG;QD
  2. RANITIDINE [Suspect]
     Dosage: QD
  3. ESTRACE [Suspect]
     Dosage: QW
  4. ENJUVIA [Suspect]
     Dosage: 0.3 MG;QD;PO
  5. ROCEPHIN [Suspect]
  6. LEVAQUIN [Suspect]

REACTIONS (4)
  - Upper respiratory tract infection [None]
  - Sinus tachycardia [None]
  - Urinary tract infection [None]
  - Electrocardiogram T wave inversion [None]
